FAERS Safety Report 7430674-2 (Version None)
Quarter: 2011Q2

REPORT INFORMATION
  Report Type: 
  Country: None (occurrence: None)
  Receive Date: 20110421
  Receipt Date: 20110323
  Transmission Date: 20111010
  Serious: No
  Sender: FDA-Public Use
  Company Number: US-BAYER-2011-025907

PATIENT
  Age: 59 Year
  Sex: Female

DRUGS (1)
  1. EOVIST [Suspect]
     Indication: NUCLEAR MAGNETIC RESONANCE IMAGING
     Dosage: 6 ML, ONCE

REACTIONS (11)
  - TREMOR [None]
  - DRY MOUTH [None]
  - TENSION HEADACHE [None]
  - BLOOD PRESSURE INCREASED [None]
  - SINUS DISORDER [None]
  - GLOSSODYNIA [None]
  - FEELING HOT [None]
  - DYSGEUSIA [None]
  - URTICARIA [None]
  - CHILLS [None]
  - HEAD DISCOMFORT [None]
